FAERS Safety Report 6504203-1 (Version None)
Quarter: 2009Q4

REPORT INFORMATION
  Report Type: 
  Country: None (occurrence: None)
  Receive Date: 20091217
  Receipt Date: 20091207
  Transmission Date: 20100525
  Serious: Yes (Other)
  Sender: FDA-Public Use
  Company Number: PHHY2009BR54545

PATIENT
  Age: 40 Year
  Sex: Male

DRUGS (1)
  1. TRILEPTAL [Suspect]
     Dosage: 300MG, UNK

REACTIONS (2)
  - PAIN [None]
  - SURGERY [None]
